FAERS Safety Report 4714503-3 (Version None)
Quarter: 2005Q3

REPORT INFORMATION
  Report Type: 
  Country: None (occurrence: None)
  Receive Date: 20050705
  Receipt Date: 20050425
  Transmission Date: 20060218
  Serious: Yes (Other)
  Sender: FDA-Public Use
  Company Number: 2005-0008287

PATIENT
  Age: 43 Year
  Sex: Male
  Weight: 43.5453 kg

DRUGS (10)
  1. VIREAD [Suspect]
     Indication: HIV INFECTION
     Dosage: 300 MG, 1 IN 1 D, ORAL
     Route: 048
     Dates: start: 20030201, end: 20040721
  2. DIDANOSINE [Suspect]
     Indication: HIV INFECTION
     Dosage: 250 MG, 1 IN 1 D, ORAL
     Route: 048
     Dates: start: 20030201, end: 20040701
  3. KALETRA [Concomitant]
  4. NEVIRAPINE [Concomitant]
  5. BACTRIM DS [Concomitant]
  6. GABAPENTIN [Concomitant]
  7. CLONAZEPAM [Concomitant]
  8. ESCITALOPRAM OXALATE [Concomitant]
  9. DILAUDID [Concomitant]
  10. MARINOL [Concomitant]

REACTIONS (4)
  - BLOOD CREATININE INCREASED [None]
  - BLOOD LACTIC ACID INCREASED [None]
  - FANCONI SYNDROME ACQUIRED [None]
  - PANCREATITIS [None]
